FAERS Safety Report 15922782 (Version 1)
Quarter: 2019Q1

REPORT INFORMATION
  Report Type: Spontaneous
  Country: US (occurrence: US)
  Receive Date: 20190205
  Receipt Date: 20190205
  Transmission Date: 20190417
  Serious: Yes (Life-Threatening, Hospitalization)
  Sender: FDA-Public Use
  Company Number: None

PATIENT
  Age: 75 Year
  Sex: Male
  Weight: 81 kg

DRUGS (7)
  1. ENTERIC ASPIRIN [Concomitant]
     Active Substance: ASPIRIN
  2. MULTIVITAMIN [Concomitant]
     Active Substance: VITAMINS
  3. AMLODIPINE [Concomitant]
     Active Substance: AMLODIPINE BESYLATE
  4. LYSINE [Concomitant]
     Active Substance: LYSINE
  5. OLMESARTAN MEDOXOMIL. [Suspect]
     Active Substance: OLMESARTAN MEDOXOMIL
     Indication: HYPERTENSION
     Dosage: ?          QUANTITY:30 CAPSULE(S);?
     Route: 048
     Dates: start: 20180731, end: 20190124
  6. TURMERIC [Concomitant]
     Active Substance: HERBALS\TURMERIC
  7. GLOUCOSAMINE-CHONDROITON [Concomitant]

REACTIONS (7)
  - Diarrhoea [None]
  - Renal impairment [None]
  - Coeliac disease [None]
  - Abdominal distension [None]
  - Increased appetite [None]
  - Dehydration [None]
  - Gastrointestinal disorder [None]

NARRATIVE: CASE EVENT DATE: 20190111
